FAERS Safety Report 25017531 (Version 1)
Quarter: 2025Q1

REPORT INFORMATION
  Report Type: Report from Study
  Country: US (occurrence: US)
  Receive Date: 20250227
  Receipt Date: 20250227
  Transmission Date: 20250408
  Serious: Yes (Other)
  Sender: GILEAD
  Company Number: US-GILEAD-2025-0705218

PATIENT
  Age: 17 Year
  Sex: Male

DRUGS (16)
  1. AZTREONAM LYSINE [Suspect]
     Active Substance: AZTREONAM LYSINE
     Indication: Cystic fibrosis
     Dosage: INHALE 1 VIAL VIA NEBULIZER 3 TIMES DAILY ALTERNATE EVERY OTHER MONTH FOR 28 DAYS ON THEN 28D OFF
     Route: 055
     Dates: start: 20240612
  2. ALBUTEROL [Concomitant]
     Active Substance: ALBUTEROL
  3. CIPROFLOXACIN [Concomitant]
     Active Substance: CIPROFLOXACIN
  4. CREON [Concomitant]
     Active Substance: PANCRELIPASE AMYLASE\PANCRELIPASE LIPASE\PANCRELIPASE PROTEASE
  5. FOCALIN XR [Concomitant]
     Active Substance: DEXMETHYLPHENIDATE HYDROCHLORIDE
  6. INTUNIV [Concomitant]
     Active Substance: GUANFACINE HYDROCHLORIDE
  7. MVW COMPLETE FORMULATION SOFTGELS [Concomitant]
  8. NYSTATIN [Concomitant]
     Active Substance: NYSTATIN
  9. PREVACID [Concomitant]
     Active Substance: LANSOPRAZOLE
  10. PULMOZYME [Concomitant]
     Active Substance: DORNASE ALFA
  11. RETIN-A [Concomitant]
     Active Substance: TRETINOIN
  12. RISPERIDONE [Concomitant]
     Active Substance: RISPERIDONE
  13. SODIUM SULFACETAMIDE AND SULFUR [Concomitant]
     Active Substance: SULFACETAMIDE SODIUM\SULFUR
  14. SYNAGIS [Concomitant]
     Active Substance: PALIVIZUMAB
  15. TRIKAFTA [Concomitant]
     Active Substance: ELEXACAFTOR\IVACAFTOR\TEZACAFTOR
  16. ZANTAC [Concomitant]
     Active Substance: RANITIDINE HYDROCHLORIDE

REACTIONS (8)
  - Loss of consciousness [Not Recovered/Not Resolved]
  - Cystic fibrosis [Not Recovered/Not Resolved]
  - Skin laceration [Not Recovered/Not Resolved]
  - Concussion [Not Recovered/Not Resolved]
  - Influenza [Not Recovered/Not Resolved]
  - Loss of personal independence in daily activities [Unknown]
  - Social problem [Unknown]
  - Exercise tolerance decreased [Unknown]
